FAERS Safety Report 20158024 (Version 2)
Quarter: 2021Q4

REPORT INFORMATION
  Report Type: Spontaneous
  Country: US (occurrence: US)
  Receive Date: 20211207
  Receipt Date: 20211207
  Transmission Date: 20220304
  Serious: No
  Sender: FDA-Public Use
  Company Number: US-SANOFI-00870699

PATIENT
  Age: 74 Year
  Sex: Female

DRUGS (1)
  1. THYROGEN [Suspect]
     Active Substance: THYROTROPIN ALFA
     Dosage: 0.9 MG, QD, 2 INJECTION

REACTIONS (5)
  - Pain in extremity [Recovered/Resolved]
  - Gait inability [Recovering/Resolving]
  - Hypokinesia [Recovering/Resolving]
  - Muscle strain [Recovering/Resolving]
  - Sciatica [Recovering/Resolving]

NARRATIVE: CASE EVENT DATE: 20210913
